FAERS Safety Report 9376947 (Version 3)
Quarter: 2013Q3

REPORT INFORMATION
  Report Type: Spontaneous
  Country: GB (occurrence: GB)
  Receive Date: 20130701
  Receipt Date: 20130710
  Transmission Date: 20140515
  Serious: Yes (Hospitalization)
  Sender: FDA-Public Use
  Company Number: PHFR2013GB003671

PATIENT
  Age: 29 Year
  Sex: Male

DRUGS (1)
  1. CLOZARIL (CLOZAPINE) [Suspect]
     Indication: SCHIZOPHRENIA
     Dosage: UNK
     Dates: start: 20070904

REACTIONS (9)
  - Gastrointestinal perforation [Unknown]
  - Pancreatitis [Unknown]
  - Tachycardia [Unknown]
  - Lower respiratory tract infection [Unknown]
  - Body temperature increased [Unknown]
  - White blood cell count increased [Unknown]
  - Neutrophil count increased [Unknown]
  - Blood creatine phosphokinase increased [Unknown]
  - Sedation [Unknown]
